FAERS Safety Report 8117832-9 (Version None)
Quarter: 2011Q4

REPORT INFORMATION
  Report Type: 
  Country: None (occurrence: None)
  Receive Date: 20111227
  Receipt Date: 20111129
  Transmission Date: 20120403
  Serious: No
  Sender: FDA-Public Use
  Company Number: PHHY2011US69588

PATIENT
  Age: 37 Year
  Sex: Female

DRUGS (2)
  1. GILENYA [Suspect]
     Indication: MULTIPLE SCLEROSIS
     Dosage: 0.5 MG, QD, ORAL
     Route: 048
     Dates: start: 20110401
  2. LYRICA [Concomitant]

REACTIONS (8)
  - DIZZINESS [None]
  - COUGH [None]
  - PAIN [None]
  - NAUSEA [None]
  - SNEEZING [None]
  - CHILLS [None]
  - INFLUENZA LIKE ILLNESS [None]
  - HEADACHE [None]
